FAERS Safety Report 11315577 (Version 2)
Quarter: 2015Q3

REPORT INFORMATION
  Report Type: Other
  Country: US (occurrence: US)
  Receive Date: 20150728
  Receipt Date: 20150929
  Transmission Date: 20151125
  Serious: Yes (Hospitalization, Other)
  Sender: FDA-Public Use
  Company Number: US-UNITED THERAPEUTICS-UNT-2015-007790

PATIENT
  Age: 60 Year
  Sex: Female
  Weight: 79.82 kg

DRUGS (4)
  1. TYVASO [Suspect]
     Active Substance: TREPROSTINIL
     Dosage: 18-54 ?G, QID
  2. LETAIRIS [Concomitant]
     Active Substance: AMBRISENTAN
     Indication: PRODUCT USED FOR UNKNOWN INDICATION
  3. TYVASO [Suspect]
     Active Substance: TREPROSTINIL
     Indication: PULMONARY ARTERIAL HYPERTENSION
     Dosage: 18-54 ?G, QID
     Dates: start: 20150402
  4. TYVASO [Suspect]
     Active Substance: TREPROSTINIL
     Dosage: 18-54 ?G, QID

REACTIONS (9)
  - Ulcer [Unknown]
  - Haematemesis [Unknown]
  - Oedema peripheral [Unknown]
  - Pharyngeal mass [Unknown]
  - Diarrhoea [Unknown]
  - Localised oedema [Unknown]
  - Blood pressure increased [Unknown]
  - Chest pain [Unknown]
  - Breast oedema [Unknown]

NARRATIVE: CASE EVENT DATE: 201506
